FAERS Safety Report 26090136 (Version 1)
Quarter: 2025Q4

REPORT INFORMATION
  Report Type: Spontaneous
  Country: EU (occurrence: EU)
  Receive Date: 20251126
  Receipt Date: 20251126
  Transmission Date: 20260118
  Serious: Yes (Other)
  Sender: ABBVIE
  Company Number: EU-ABBVIE-6563036

PATIENT
  Age: 40 Year
  Sex: Male
  Weight: 72 kg

DRUGS (1)
  1. UPADACITINIB [Suspect]
     Active Substance: UPADACITINIB
     Indication: Crohn^s disease
     Route: 048
     Dates: start: 202307

REACTIONS (5)
  - Ileal stenosis [Unknown]
  - Decreased appetite [Unknown]
  - Subcutaneous abscess [Unknown]
  - Diarrhoea [Unknown]
  - Dyschezia [Unknown]

NARRATIVE: CASE EVENT DATE: 20231101
